FAERS Safety Report 24909839 (Version 1)
Quarter: 2025Q1

REPORT INFORMATION
  Report Type: Spontaneous
  Country: US (occurrence: None)
  Receive Date: 20250131
  Receipt Date: 20250131
  Transmission Date: 20250409
  Serious: Yes (Hospitalization)
  Sender: FDA-CTU
  Company Number: None

PATIENT
  Age: 32 Year
  Sex: Female
  Weight: 51.3 kg

DRUGS (4)
  1. FLUOROURACIL [Suspect]
     Active Substance: FLUOROURACIL
  2. CAMPTOSAR [Suspect]
     Active Substance: IRINOTECAN HYDROCHLORIDE
  3. NIVOLUMAB [Suspect]
     Active Substance: NIVOLUMAB
  4. ELOXATIN [Suspect]
     Active Substance: OXALIPLATIN

REACTIONS (5)
  - Thrombocytopenia [None]
  - Acute kidney injury [None]
  - Heart rate increased [None]
  - Pneumonia viral [None]
  - Therapy cessation [None]

NARRATIVE: CASE EVENT DATE: 20250124
